FAERS Safety Report 14833489 (Version 1)
Quarter: 2018Q2

REPORT INFORMATION
  Report Type: Spontaneous
  Country: US (occurrence: US)
  Receive Date: 20180411
  Receipt Date: 20180411
  Transmission Date: 20180711
  Serious: Yes (Hospitalization, Disabling, Other)
  Sender: FDA-Public Use
  Company Number: None

PATIENT
  Age: 48 Year
  Sex: Male
  Weight: 85.95 kg

DRUGS (8)
  1. BENZOIN TINCTURE [Suspect]
     Active Substance: BENZOIN RESIN
     Indication: LAPAROSCOPIC SURGERY
     Dosage: OTHER STRENGTH:VIAL;QUANTITY:1 VIAL;OTHER FREQUENCY:SURGERY;?
     Route: 061
     Dates: start: 20120222
  2. COLCRYS [Concomitant]
     Active Substance: COLCHICINE
  3. ZOLPIDEM [Concomitant]
     Active Substance: ZOLPIDEM\ZOLPIDEM TARTRATE
  4. OXYCODONE [Concomitant]
     Active Substance: OXYCODONE
  5. BENZOIN TINCTURE [Suspect]
     Active Substance: BENZOIN RESIN
     Indication: CHOLECYSTECTOMY
     Dosage: OTHER STRENGTH:VIAL;QUANTITY:1 VIAL;OTHER FREQUENCY:SURGERY;?
     Route: 061
     Dates: start: 20120222
  6. DEXAMETHASONE. [Concomitant]
     Active Substance: DEXAMETHASONE
  7. VITAMIN D3 [Concomitant]
     Active Substance: CHOLECALCIFEROL
  8. DIAZEPAM. [Concomitant]
     Active Substance: DIAZEPAM

REACTIONS (6)
  - Loss of consciousness [None]
  - Pain [None]
  - Dizziness [None]
  - Hypersensitivity [None]
  - Postoperative wound complication [None]
  - Application site reaction [None]

NARRATIVE: CASE EVENT DATE: 20120222
